FAERS Safety Report 8879318 (Version 2)
Quarter: 2012Q4

REPORT INFORMATION
  Report Type: 
  Country: GT (occurrence: GT)
  Receive Date: 20121031
  Receipt Date: 20121109
  Transmission Date: 20130627
  Serious: Yes (Hospitalization, Other)
  Sender: FDA-Public Use
  Company Number: GT-BAXTER-2012BAX021525

PATIENT
  Age: 10 None
  Sex: Female
  Weight: 56 kg

DRUGS (5)
  1. FEIBA [Suspect]
     Indication: HEMORRHAGE
     Dosage: 1500 IU (3 VIALS) every12h
     Route: 042
     Dates: start: 20121020, end: 20121021
  2. FEIBA [Suspect]
     Indication: DRUG USE FOR UNKNOWN INDICATION
     Route: 065
     Dates: start: 201107
  3. FEIBA [Suspect]
     Dosage: 1000 IU (2 VIALS) EVERY 8 HOURS
     Route: 065
     Dates: start: 20121027, end: 20121028
  4. FEIBA [Suspect]
     Dosage: 3000 IU (6 VIALS) EVERY 8 HOURS
     Route: 065
     Dates: start: 20121028, end: 20121031
  5. FEIBA [Suspect]
     Dosage: 3000 IU (6 VIALS) EVERY 12 HOURS
     Route: 065

REACTIONS (9)
  - Pyrexia [Recovered/Resolved]
  - Haemarthrosis [Recovered/Resolved]
  - Pain [Unknown]
  - Tooth socket haemorrhage [Recovered/Resolved]
  - Nasopharyngitis [Recovered/Resolved]
  - Skin discolouration [Recovered/Resolved]
  - Vomiting [Recovered/Resolved]
  - Infusion site discolouration [Recovered/Resolved]
  - Haemorrhage [Unknown]
